FAERS Safety Report 4277325-6 (Version None)
Quarter: 2004Q1

REPORT INFORMATION
  Report Type: 
  Country: None (occurrence: None)
  Receive Date: 20040121
  Receipt Date: 20040113
  Transmission Date: 20041129
  Serious: Yes (Death, Life-Threatening, Other)
  Sender: FDA-Public Use
  Company Number: 2003-12-1091

PATIENT
  Age: 53 Year
  Sex: Male
  Weight: 59.8748 kg

DRUGS (15)
  1. PEG-INTRON [Suspect]
     Indication: HEPATITIS C
     Dosage: 64-60.8 UG/2* SUBCUTANEOUS
     Route: 058
     Dates: start: 20030326, end: 20031203
  2. REBETOL [Suspect]
     Indication: HEPATITIS C
     Dosage: 800 MG QD ORAL
     Route: 048
     Dates: start: 20030326, end: 20031201
  3. EPOGEN [Concomitant]
  4. ACETAMINOPHEN W/OXYCODONE TABLETS [Concomitant]
  5. TESTOSTERONE CIPIONATE INJECTABLE [Concomitant]
  6. STAVUDINE (DIDEHYDROTHYMIDINE) CAPSULES [Concomitant]
  7. RITONAVIR CAPSULES [Concomitant]
  8. NORTRIPTYLINE HCL [Concomitant]
  9. MULTI-VITAMINS [Concomitant]
  10. LAMIVUDINE (3TC) [Concomitant]
  11. INDINAVIR SULFATE CAPSULES [Concomitant]
  12. FOLIC ACID [Concomitant]
  13. FERROUS SULFATE TABLETS [Concomitant]
  14. BACITRACIN OPHTHALMIC OINTMENT [Concomitant]
  15. ARTIFICIAL TEARS OPHTHALMIC SOLUTION [Concomitant]

REACTIONS (17)
  - ANOREXIA [None]
  - ASTHENIA [None]
  - BLOOD CHLORIDE DECREASED [None]
  - BLOOD CHLORIDE INCREASED [None]
  - BLOOD CREATININE INCREASED [None]
  - BLOOD POTASSIUM INCREASED [None]
  - BLOOD SODIUM DECREASED [None]
  - BLOOD UREA INCREASED [None]
  - DEHYDRATION [None]
  - DIZZINESS POSTURAL [None]
  - HAEMATOCRIT DECREASED [None]
  - HAEMOGLOBIN DECREASED [None]
  - PCO2 DECREASED [None]
  - PLATELET COUNT DECREASED [None]
  - RENAL FAILURE [None]
  - WEIGHT DECREASED [None]
  - WHITE BLOOD CELL COUNT DECREASED [None]
